FAERS Safety Report 8591960-6 (Version None)
Quarter: 2012Q3

REPORT INFORMATION
  Report Type: 
  Country: None (occurrence: None)
  Receive Date: 20120814
  Receipt Date: 20120730
  Transmission Date: 20120928
  Serious: No
  Sender: FDA-Public Use
  Company Number: US-B.I. PHARMACEUTICALS,INC./RIDGEFIELD-2012-BP-17170BP

PATIENT
  Sex: Male
  Weight: 104 kg

DRUGS (4)
  1. VISTOLIC [Concomitant]
     Indication: HYPERTENSION
     Dosage: 5 MG
     Route: 048
     Dates: start: 20090101
  2. MEDICATION NOT FURTHER SPECIFIED [Concomitant]
     Indication: RENAL DISORDER
     Dates: start: 20100101
  3. SYNTHROID [Concomitant]
     Indication: THYROID DISORDER
     Dates: start: 20020101
  4. PRADAXA [Suspect]
     Indication: HEART RATE IRREGULAR
     Dosage: 300 MG
     Route: 048
     Dates: start: 20111001

REACTIONS (1)
  - TOOTH DISORDER [None]
